FAERS Safety Report 24258643 (Version 1)
Quarter: 2024Q3

REPORT INFORMATION
  Report Type: Spontaneous
  Country: NL (occurrence: NL)
  Receive Date: 20240828
  Receipt Date: 20240828
  Transmission Date: 20241016
  Serious: Yes (Other)
  Sender: PFIZER
  Company Number: None

PATIENT
  Age: 36 Year
  Sex: Male
  Weight: 95 kg

DRUGS (10)
  1. DEPO-MEDROL [Suspect]
     Active Substance: METHYLPREDNISOLONE ACETATE
     Indication: Inflammation
     Dosage: UNK, SINGLE (1 INJECTION IN APRIL, 1 INJECTION IN JULY)
     Dates: start: 202404
  2. DEPO-MEDROL [Suspect]
     Active Substance: METHYLPREDNISOLONE ACETATE
     Dosage: UNK, SINGLE (1 INJECTION IN APRIL, 1 INJECTION IN JULY)
     Dates: start: 20240711
  3. LEVOCETIRIZINE [Concomitant]
     Active Substance: LEVOCETIRIZINE
     Dosage: UNK
  4. AXIUM [Concomitant]
     Dosage: UNK, 1X/DAY (1 PER DAG)
  5. MAGNESIUM BISGLYCINATE [Concomitant]
     Dosage: 150 MG
  6. DEXTROAMPHETAMINE [Concomitant]
     Active Substance: DEXTROAMPHETAMINE
     Dosage: UNK
  7. OMEPRAZOLE [Concomitant]
     Active Substance: OMEPRAZOLE
     Dosage: UNK
  8. ROTER VITAM.C [Concomitant]
     Dosage: 1000 MG
  9. VOLCOLON [Concomitant]
     Dosage: UNK
  10. NASONEX [Concomitant]
     Active Substance: MOMETASONE FUROATE
     Dosage: NEUSPRAY, 50 UG/DOSIS (MICROGRAMS PER DOSIS)

REACTIONS (9)
  - Hallucination, auditory [Recovered/Resolved]
  - Panic disorder [Recovering/Resolving]
  - Acne [Recovered/Resolved]
  - Stress [Recovering/Resolving]
  - Depressed mood [Recovering/Resolving]
  - Dermatitis [Recovered/Resolved]
  - Affect lability [Recovering/Resolving]
  - Insomnia [Recovering/Resolving]
  - Ingrown hair [Recovered/Resolved]
